FAERS Safety Report 4985462-3 (Version None)
Quarter: 2006Q2

REPORT INFORMATION
  Report Type: 
  Country: None (occurrence: None)
  Receive Date: 20060428
  Receipt Date: 20050318
  Transmission Date: 20061013
  Serious: No
  Sender: FDA-Public Use
  Company Number: US-GLAXOSMITHKLINE-A0550445A

PATIENT
  Age: 33 Year
  Sex: Female

DRUGS (3)
  1. FLOVENT [Suspect]
     Indication: ASTHMA
     Dosage: 2PUFF TWICE PER DAY
     Route: 055
  2. SINGULAIR [Concomitant]
  3. UNIPHYL [Concomitant]

REACTIONS (2)
  - RASH [None]
  - THROAT TIGHTNESS [None]
